FAERS Safety Report 4495495-1 (Version None)
Quarter: 2004Q4

REPORT INFORMATION
  Report Type: 
  Country: None (occurrence: None)
  Receive Date: 20041108
  Receipt Date: 20041027
  Transmission Date: 20050328
  Serious: Yes (Hospitalization)
  Sender: FDA-Public Use
  Company Number: FR-JNJFOC-20041008390

PATIENT
  Age: 58 Year
  Sex: Female

DRUGS (3)
  1. HALDOL [Suspect]
     Route: 049
  2. DEPAMIDE [Suspect]
     Route: 049
  3. MEDROL [Concomitant]

REACTIONS (9)
  - AGITATION [None]
  - ALANINE AMINOTRANSFERASE INCREASED [None]
  - ASPARTATE AMINOTRANSFERASE INCREASED [None]
  - ASTHENIA [None]
  - GAMMA-GLUTAMYLTRANSFERASE INCREASED [None]
  - HEADACHE [None]
  - INFLAMMATION [None]
  - INSOMNIA [None]
  - POLYARTHRITIS [None]
